FAERS Safety Report 6544658-X (Version None)
Quarter: 2010Q1

REPORT INFORMATION
  Report Type: 
  Country: None (occurrence: None)
  Receive Date: 20100121
  Receipt Date: 20100112
  Transmission Date: 20100710
  Serious: Yes (Hospitalization)
  Sender: FDA-Public Use
  Company Number: ES-BAYER-201011167GPV

PATIENT
  Age: 53 Year
  Sex: Male

DRUGS (5)
  1. NEXAVAR [Suspect]
     Indication: HEPATIC NEOPLASM MALIGNANT
     Dosage: TOTAL DAILY DOSE: 800 MG
     Route: 048
     Dates: start: 20091014, end: 20090101
  2. NEXAVAR [Suspect]
     Dosage: TOTAL DAILY DOSE: 400 MG
     Route: 048
     Dates: start: 20090101, end: 20091116
  3. ZEFFIX [Concomitant]
     Indication: HEPATITIS B
     Route: 048
     Dates: start: 20060927
  4. HEPSERA [Concomitant]
     Indication: HEPATITIS B
     Route: 048
     Dates: start: 20080211
  5. CLAVERSAL [Concomitant]
     Indication: COLITIS ULCERATIVE
     Route: 065
     Dates: start: 20060101

REACTIONS (6)
  - COLITIS ULCERATIVE [None]
  - DEHYDRATION [None]
  - DIARRHOEA [None]
  - ENCEPHALOPATHY [None]
  - GENERAL PHYSICAL HEALTH DETERIORATION [None]
  - HYPONATRAEMIA [None]
